FAERS Safety Report 6684369-3 (Version None)
Quarter: 2010Q2

REPORT INFORMATION
  Report Type: 
  Country: None (occurrence: None)
  Receive Date: 20100416
  Receipt Date: 20100405
  Transmission Date: 20101027
  Serious: Yes (Other)
  Sender: FDA-Public Use
  Company Number: CHPA2010US03389

PATIENT
  Age: 82 Year
  Sex: Female

DRUGS (2)
  1. TRANSDERM SCOP [Suspect]
     Indication: BALANCE DISORDER
     Dosage: 1 DF, QD
     Route: 062
     Dates: start: 20040101, end: 20090101
  2. TRANSDERM SCOP [Suspect]
     Indication: GAIT DISTURBANCE

REACTIONS (5)
  - APPLICATION SITE RASH [None]
  - DRUG INEFFECTIVE FOR UNAPPROVED INDICATION [None]
  - FALL [None]
  - INAPPROPRIATE SCHEDULE OF DRUG ADMINISTRATION [None]
  - MIDDLE EAR DISORDER [None]
